FAERS Safety Report 10014501 (Version 1)
Quarter: 2014Q1

REPORT INFORMATION
  Report Type: Not Available
  Country: AU (occurrence: AU)
  Receive Date: 20140317
  Receipt Date: 20140317
  Transmission Date: 20141002
  Serious: Yes (Hospitalization)
  Sender: FDA-Public Use
  Company Number: AU-NAPPMUNDI-GBR-2014-0017330

PATIENT
  Age: 52 Year
  Sex: Male
  Weight: 100 kg

DRUGS (13)
  1. MS CONTIN [Suspect]
     Indication: PRODUCT USED FOR UNKNOWN INDICATION
     Dosage: 60 MG, BID
     Route: 048
     Dates: start: 20131211
  2. MS CONTIN [Suspect]
     Dosage: 30 MG, BID
     Route: 048
     Dates: start: 20131125
  3. MS CONTIN [Suspect]
     Dosage: 10 MG, BID
     Route: 048
     Dates: start: 20131114
  4. TAPENTADOL [Suspect]
     Indication: PRODUCT USED FOR UNKNOWN INDICATION
     Dosage: 150 MG, BID
     Route: 065
     Dates: start: 20131114
  5. TAPENTADOL [Suspect]
     Dosage: 250 MG, BID
     Route: 065
  6. DIAZEPAM [Concomitant]
  7. DULOXETINE [Concomitant]
  8. HEXAMINE                           /00054401/ [Concomitant]
  9. METFORMIN [Concomitant]
  10. NAPROXEN [Concomitant]
  11. OXYBUTYNIN [Concomitant]
  12. PREGABALIN [Concomitant]
  13. ROSUVASTATIN [Concomitant]

REACTIONS (5)
  - Transaminases increased [Recovered/Resolved]
  - Confusional state [Recovered/Resolved]
  - Loss of consciousness [Recovered/Resolved]
  - Retrograde amnesia [Recovered/Resolved]
  - Delirium [Recovered/Resolved]
